FAERS Safety Report 18636814 (Version 1)
Quarter: 2020Q4

REPORT INFORMATION
  Report Type: Spontaneous
  Country: US (occurrence: US)
  Receive Date: 20201218
  Receipt Date: 20201218
  Transmission Date: 20210114
  Serious: Yes (Hospitalization, Other)
  Sender: FDA-Public Use
  Company Number: US-ASTRAZENECA-2019SE10474

PATIENT
  Age: 62 Year
  Sex: Female
  Weight: 86.2 kg

DRUGS (57)
  1. VITAMIN D3 [Concomitant]
     Active Substance: CHOLECALCIFEROL
     Indication: BONE DISORDER
  2. LASIX [Concomitant]
     Active Substance: FUROSEMIDE
     Indication: SWELLING
  3. TYLENOL [Concomitant]
     Active Substance: ACETAMINOPHEN
     Indication: PAIN
  4. SULFAMETHOXAZOLE [Concomitant]
     Active Substance: SULFAMETHOXAZOLE
  5. PRILOSEC [Suspect]
     Active Substance: OMEPRAZOLE MAGNESIUM
     Indication: GASTROOESOPHAGEAL REFLUX DISEASE
     Dosage: GENERIC
     Route: 048
     Dates: start: 20180830
  6. IRON [Concomitant]
     Active Substance: IRON
  7. AMLODIPINE [Concomitant]
     Active Substance: AMLODIPINE BESYLATE
     Indication: BLOOD PRESSURE ABNORMAL
  8. CARVEDILOL. [Concomitant]
     Active Substance: CARVEDILOL
     Indication: BLOOD PRESSURE ABNORMAL
  9. AMBIEN [Concomitant]
     Active Substance: ZOLPIDEM TARTRATE
  10. DEMADEX [Concomitant]
     Active Substance: TORSEMIDE
  11. BICITRA [Concomitant]
     Active Substance: CITRIC ACID, 1-STEARYL ESTER\SODIUM CITRATE
  12. AMOXICILLIN. [Concomitant]
     Active Substance: AMOXICILLIN
  13. PRILOSEC [Suspect]
     Active Substance: OMEPRAZOLE MAGNESIUM
     Indication: GASTROOESOPHAGEAL REFLUX DISEASE
     Dosage: GENERIC
     Route: 048
     Dates: start: 20100504
  14. RANITIDINE. [Concomitant]
     Active Substance: RANITIDINE
     Dates: start: 2012, end: 2020
  15. NORCO [Concomitant]
     Active Substance: ACETAMINOPHEN\HYDROCODONE BITARTRATE
  16. ESTRADIOL. [Concomitant]
     Active Substance: ESTRADIOL
  17. TERBINAFINE. [Concomitant]
     Active Substance: TERBINAFINE
  18. AMITRIPTYLINE [Concomitant]
     Active Substance: AMITRIPTYLINE
  19. DICLOFENAC [Concomitant]
     Active Substance: DICLOFENAC
  20. DICYCLOMINE [Concomitant]
     Active Substance: DICYCLOMINE HYDROCHLORIDE
  21. PRILOSEC [Suspect]
     Active Substance: OMEPRAZOLE MAGNESIUM
     Indication: GASTROOESOPHAGEAL REFLUX DISEASE
     Route: 048
     Dates: start: 20101217
  22. PROTONIX [Suspect]
     Active Substance: PANTOPRAZOLE SODIUM
     Indication: GASTROOESOPHAGEAL REFLUX DISEASE
     Route: 048
     Dates: start: 20110315
  23. LEXAPRO [Concomitant]
     Active Substance: ESCITALOPRAM OXALATE
     Indication: DEPRESSION
  24. CEPHALEXIN. [Concomitant]
     Active Substance: CEPHALEXIN
  25. METHYLPREDNISONE [Concomitant]
     Active Substance: METHYLPREDNISOLONE
  26. VENLAFAXINE [Concomitant]
     Active Substance: VENLAFAXINE HYDROCHLORIDE
  27. CLARITHROMYCIN. [Concomitant]
     Active Substance: CLARITHROMYCIN
  28. TUMS [Concomitant]
     Active Substance: CALCIUM CARBONATE
  29. MOBIC [Concomitant]
     Active Substance: MELOXICAM
  30. ONDANSETRON [Concomitant]
     Active Substance: ONDANSETRON
  31. CYCLOBENZAPRINE. [Concomitant]
     Active Substance: CYCLOBENZAPRINE
  32. SEROQUEL [Concomitant]
     Active Substance: QUETIAPINE FUMARATE
  33. PRILOSEC [Suspect]
     Active Substance: OMEPRAZOLE MAGNESIUM
     Indication: GASTROOESOPHAGEAL REFLUX DISEASE
     Route: 048
     Dates: start: 20101217
  34. PROTONIX [Suspect]
     Active Substance: PANTOPRAZOLE SODIUM
     Indication: GASTROOESOPHAGEAL REFLUX DISEASE
     Route: 065
     Dates: start: 20200315, end: 2020
  35. ASPIRIN. [Concomitant]
     Active Substance: ASPIRIN
     Indication: PAIN
     Dates: start: 2013
  36. ASPIRIN. [Concomitant]
     Active Substance: ASPIRIN
     Indication: THROMBOSIS
     Dates: start: 2013
  37. PHENTERMINE. [Concomitant]
     Active Substance: PHENTERMINE
     Indication: FATIGUE
  38. GABAPENTIN. [Concomitant]
     Active Substance: GABAPENTIN
     Indication: NEURALGIA
  39. VALIUM [Concomitant]
     Active Substance: DIAZEPAM
  40. CIPRO [Concomitant]
     Active Substance: CIPROFLOXACIN HYDROCHLORIDE
  41. CORICIDIN [Concomitant]
  42. TRIMETHOPRIM. [Concomitant]
     Active Substance: TRIMETHOPRIM
  43. DEXILANT [Suspect]
     Active Substance: DEXLANSOPRAZOLE
     Indication: GASTROOESOPHAGEAL REFLUX DISEASE
     Route: 065
     Dates: start: 202011
  44. CALCITRIOL. [Concomitant]
     Active Substance: CALCITRIOL
     Indication: BLOOD CALCIUM ABNORMAL
  45. MYLANTA [Concomitant]
     Active Substance: ALUMINUM HYDROXIDE\DIMETHICONE\MAGNESIUM HYDROXIDE
  46. PEPTO-BISMOL [Concomitant]
     Active Substance: BISMUTH SUBSALICYLATE
  47. REGLAN [Concomitant]
     Active Substance: METOCLOPRAMIDE HYDROCHLORIDE
  48. PERCOCET [Concomitant]
     Active Substance: ACETAMINOPHEN\OXYCODONE HYDROCHLORIDE
  49. TEMAZEPAM. [Concomitant]
     Active Substance: TEMAZEPAM
  50. TRAMADOL. [Concomitant]
     Active Substance: TRAMADOL
  51. OSELTAMIVIR [Concomitant]
     Active Substance: OSELTAMIVIR
  52. CEFUROXIME. [Concomitant]
     Active Substance: CEFUROXIME
  53. PRILOSEC [Suspect]
     Active Substance: OMEPRAZOLE MAGNESIUM
     Indication: GASTROOESOPHAGEAL REFLUX DISEASE
     Dosage: GENERIC
     Route: 048
     Dates: start: 2013
  54. MELATONIN [Concomitant]
     Active Substance: MELATONIN
  55. NAPROXEN. [Concomitant]
     Active Substance: NAPROXEN
  56. FLUCONAZOLE. [Concomitant]
     Active Substance: FLUCONAZOLE
  57. NITROFURANTOIN. [Concomitant]
     Active Substance: NITROFURANTOIN

REACTIONS (7)
  - Hyperparathyroidism secondary [Unknown]
  - Renal failure [Not Recovered/Not Resolved]
  - Acute kidney injury [Not Recovered/Not Resolved]
  - End stage renal disease [Not Recovered/Not Resolved]
  - Nephrogenic anaemia [Unknown]
  - Chronic kidney disease [Not Recovered/Not Resolved]
  - Depression [Not Recovered/Not Resolved]

NARRATIVE: CASE EVENT DATE: 2010
